FAERS Safety Report 5697369-7 (Version None)
Quarter: 2008Q2

REPORT INFORMATION
  Report Type: 
  Country: None (occurrence: None)
  Receive Date: 20080408
  Receipt Date: 20080403
  Transmission Date: 20081010
  Serious: Yes (Death, Life-Threatening)
  Sender: FDA-Public Use
  Company Number: CH-BAYER-200812049GPV

PATIENT
  Age: 60 Year
  Sex: Female

DRUGS (1)
  1. ULTRAVIST 300 [Suspect]
     Indication: COMPUTERISED TOMOGRAM THORAX
     Route: 042
     Dates: start: 20071227

REACTIONS (7)
  - ANAPHYLACTOID SHOCK [None]
  - BRAIN COMPRESSION [None]
  - BRAIN OEDEMA [None]
  - BRONCHOSPASM [None]
  - CARDIAC ARREST [None]
  - COMA [None]
  - HYPOXIC ENCEPHALOPATHY [None]
